FAERS Safety Report 10744151 (Version 2)
Quarter: 2015Q1

REPORT INFORMATION
  Report Type: Spontaneous
  Country: US (occurrence: None)
  Receive Date: 20150126
  Receipt Date: 20150203
  Transmission Date: 20150721
  Serious: Yes (Other)
  Sender: FDA-Public Use
  Company Number: 20150018

PATIENT
  Age: 5 Month
  Sex: Male

DRUGS (6)
  1. FUROSEMIDE INJECTION, USP (5702-25) 10 MG/ML [Suspect]
     Active Substance: FUROSEMIDE
     Indication: PRODUCT USED FOR UNKNOWN INDICATION
     Dosage: DOSE NOT PROVIDED
  2. PIPERACILLIN-TAZOBACTA, [Concomitant]
  3. EPINEPHRINE INJECTION, USP (1071-25) 1 MG/ML [Suspect]
     Active Substance: EPINEPHRINE
     Indication: BRADYCARDIA
     Dosage: BOLUSES
     Route: 041
  4. VANCOMYCIN [Concomitant]
     Active Substance: VANCOMYCIN
  5. MILRINONE [Concomitant]
     Active Substance: MILRINONE
  6. FENTANYL. [Concomitant]
     Active Substance: FENTANYL

REACTIONS (2)
  - Coma blister [None]
  - Epidermal necrosis [None]
